FAERS Safety Report 6892019-6 (Version None)
Quarter: 2010Q3

REPORT INFORMATION
  Report Type: 
  Country: None (occurrence: None)
  Receive Date: 20100731
  Receipt Date: 20080104
  Transmission Date: 20110219
  Serious: Yes (Other)
  Sender: FDA-Public Use
  Company Number: US-PFIZER INC-2008001691

PATIENT
  Sex: Male
  Weight: 99.8 kg

DRUGS (36)
  1. GABAPENTIN [Suspect]
     Indication: PAIN
     Route: 048
     Dates: start: 20080101, end: 20080104
  2. BUPROPION [Concomitant]
  3. QUETIAPINE [Concomitant]
  4. ALPRAZOLAM [Concomitant]
  5. TEMAZEPAM [Concomitant]
  6. MULTIPLE VITAMINS [Concomitant]
  7. METFORMIN HCL [Concomitant]
  8. FUROSEMIDE [Concomitant]
  9. FUROSEMIDE [Concomitant]
  10. METOLAZONE [Concomitant]
  11. METOLAZONE [Concomitant]
  12. FEXOFENADINE [Concomitant]
  13. FEXOFENADINE [Concomitant]
  14. ATORVASTATIN [Concomitant]
  15. ATORVASTATIN [Concomitant]
  16. ZETIA [Concomitant]
  17. ZETIA [Concomitant]
  18. TRICOR [Concomitant]
  19. TRICOR [Concomitant]
  20. NIASPAN [Concomitant]
  21. NIASPAN [Concomitant]
  22. SUCRALFATE [Concomitant]
  23. SUCRALFATE [Concomitant]
  24. DICYCLOMINE [Concomitant]
  25. DICYCLOMINE [Concomitant]
  26. OMEPRAZOLE [Concomitant]
  27. OMEPRAZOLE [Concomitant]
  28. OXYBUTYNIN CHLORIDE [Concomitant]
  29. OXYBUTYNIN CHLORIDE [Concomitant]
  30. DOCUSATE [Concomitant]
  31. DOCUSATE [Concomitant]
  32. IPRATROPIUM BROMIDE [Concomitant]
  33. ALBUTEROL [Concomitant]
  34. AEROBID [Concomitant]
  35. NITROGLYCERIN [Concomitant]
  36. IBUPROFEN TABLETS [Concomitant]

REACTIONS (1)
  - ERECTILE DYSFUNCTION [None]
